FAERS Safety Report 5276247-1 (Version None)
Quarter: 2007Q1

REPORT INFORMATION
  Report Type: 
  Country: None (occurrence: None)
  Receive Date: 20070326
  Receipt Date: 20070312
  Transmission Date: 20070707
  Serious: Yes (Death, Other)
  Sender: FDA-Public Use
  Company Number: US-ELI_LILLY_AND_COMPANY-US200703002894

PATIENT
  Age: 29 Year
  Sex: Female

DRUGS (1)
  1. CYMBALTA [Suspect]
     Dates: end: 20070101

REACTIONS (2)
  - DRUG INTERACTION [None]
  - HYPERTHERMIA MALIGNANT [None]
